FAERS Safety Report 16699387 (Version 1)
Quarter: 2019Q3

REPORT INFORMATION
  Report Type: Other
  Country: JP (occurrence: JP)
  Receive Date: 20190813
  Receipt Date: 20190813
  Transmission Date: 20191004
  Serious: Yes (Death, Life-Threatening, Hospitalization)
  Sender: FDA-Public Use
  Company Number: JP-NOSTRUM LABORATORIES, INC.-2073106

PATIENT
  Age: 79 Year
  Sex: Male

DRUGS (1)
  1. CLARITHROMYCIN EXTENDED RELEASE (ANDA 203243) [Suspect]
     Active Substance: CLARITHROMYCIN
     Indication: DIARRHOEA
     Route: 048

REACTIONS (5)
  - Endotoxic shock [Fatal]
  - Diabetic ketoacidosis [Fatal]
  - Pseudomembranous colitis [Fatal]
  - Acute kidney injury [Fatal]
  - Abdominal compartment syndrome [Fatal]
